FAERS Safety Report 7547665-3 (Version None)
Quarter: 2011Q2

REPORT INFORMATION
  Report Type: 
  Country: None (occurrence: None)
  Receive Date: 20110614
  Receipt Date: 20110608
  Transmission Date: 20111010
  Serious: Yes (Congenital Anomaly, Other)
  Sender: FDA-Public Use
  Company Number: US-RB-026248-11

PATIENT
  Sex: Male

DRUGS (3)
  1. SUBOXONE [Suspect]
     Indication: DRUG DEPENDENCE
     Route: 064
     Dates: start: 20090701, end: 20100215
  2. SUBOXONE [Suspect]
     Route: 064
     Dates: start: 20090701, end: 20090701
  3. SUBOXONE [Suspect]
     Route: 063
     Dates: start: 20100216, end: 20100201

REACTIONS (3)
  - AMBLYOPIA [None]
  - DRUG EXPOSURE DURING PREGNANCY [None]
  - DRUG EXPOSURE VIA BREAST MILK [None]
